FAERS Safety Report 4465735-3 (Version None)
Quarter: 2004Q3

REPORT INFORMATION
  Report Type: 
  Country: None (occurrence: None)
  Receive Date: 20040929
  Receipt Date: 20040929
  Transmission Date: 20050211
  Serious: Yes (Hospitalization)
  Sender: FDA-Public Use
  Company Number: None

PATIENT
  Age: 59 Year
  Sex: Male
  Weight: 75.8 kg

DRUGS (9)
  1. MONOPRIL [Suspect]
     Indication: HYPERTENSION
     Dosage: 10MG  DAILY  ORAL
     Route: 048
     Dates: start: 20040629, end: 20040706
  2. ACETAMINOPHEN TAB [Concomitant]
  3. FELODIPINE [Concomitant]
  4. HYDRALAZINE HCL TAB [Concomitant]
  5. ISOSORBIDE DINITRATE TAB [Concomitant]
  6. LABETALOL HCL TAB [Concomitant]
  7. MAGNESIUM HYDROXIDE SUSP [Concomitant]
  8. OMEPRAZOLE [Concomitant]
  9. SODIUM CHLORIDE INJ [Concomitant]

REACTIONS (2)
  - BLOOD PRESSURE INCREASED [None]
  - RENAL FAILURE ACUTE [None]
